FAERS Safety Report 23312869 (Version 2)
Quarter: 2023Q4

REPORT INFORMATION
  Report Type: Spontaneous
  Country: FR (occurrence: FR)
  Receive Date: 20231219
  Receipt Date: 20231227
  Transmission Date: 20240109
  Serious: Yes (Hospitalization)
  Sender: FDA-Public Use
  Company Number: FR-ROCHE-3475640

PATIENT
  Age: 30 Year
  Sex: Male

DRUGS (13)
  1. VALIUM [Suspect]
     Active Substance: DIAZEPAM
     Indication: Anxiety
     Dosage: FREQUENCY: MORNING, NOON AND EVENING, THEN INCREASE TO 6X/DAY
     Route: 065
     Dates: start: 2023
  2. VALIUM [Suspect]
     Active Substance: DIAZEPAM
     Dosage: DIAZEPAM 60 MG/DAY DIVIDED INTO 6 DOSES: INEFFECTIVE ACCORDING TO THE PATIENT ON HIS ANXIETY
     Route: 065
  3. BROMAZEPAM [Suspect]
     Active Substance: BROMAZEPAM
     Indication: Product used for unknown indication
     Route: 065
     Dates: start: 2023
  4. ZOLPIDEM [Suspect]
     Active Substance: ZOLPIDEM TARTRATE
     Indication: Product used for unknown indication
     Route: 065
     Dates: start: 2023
  5. XANAX [Suspect]
     Active Substance: ALPRAZOLAM
     Indication: Product used for unknown indication
     Route: 065
     Dates: start: 2023
  6. METHYLPHENIDATE HYDROCHLORIDE [Suspect]
     Active Substance: METHYLPHENIDATE HYDROCHLORIDE
     Indication: Product used for unknown indication
     Route: 065
     Dates: start: 2023
  7. METHYLPHENIDATE HYDROCHLORIDE [Suspect]
     Active Substance: METHYLPHENIDATE HYDROCHLORIDE
     Dosage: FREQUENCY: TID TIME INTERVAL: 0.33 DAYS;
     Route: 065
  8. ZYPREXA [Suspect]
     Active Substance: OLANZAPINE
     Indication: Pain
     Route: 065
  9. PRAZEPAM [Suspect]
     Active Substance: PRAZEPAM
     Indication: Product used for unknown indication
     Dosage: FREQUENCY: TID, PLASMA PEAK 4-6H, 10-10-10 TIME INTERVAL: 0.33 DAYS;
     Route: 065
  10. TRANXENE [Suspect]
     Active Substance: CLORAZEPATE DIPOTASSIUM
     Indication: Product used for unknown indication
     Dosage: FREQUENCY: TID, PLASMA PEAK 1H, THEREFORE MORE ADDICTIVE TIME INTERVAL: 0.33 DAYS;
     Route: 065
  11. CANNABIS SATIVA SUBSP. INDICA TOP [Suspect]
     Active Substance: CANNABIS SATIVA SUBSP. INDICA TOP
     Indication: Product used for unknown indication
     Dosage: ONGOING
     Route: 065
     Dates: start: 2011
  12. COCAINE [Suspect]
     Active Substance: COCAINE
     Indication: Product used for unknown indication
     Dosage: (18 YRS)- ONGOING, IV OR SNORTED, 1G/D 5 (RELATED CASES: AV-MPL 23-584, ENDOCARDITIS, SEVERE UNDE...
     Route: 042
     Dates: start: 2011
  13. METHADONE [Suspect]
     Active Substance: METHADONE HYDROCHLORIDE
     Indication: Pain
     Route: 065
     Dates: start: 2023

REACTIONS (2)
  - Endocarditis [Unknown]
  - Drug use disorder [Unknown]

NARRATIVE: CASE EVENT DATE: 20230101
